FAERS Safety Report 10572210 (Version 1)
Quarter: 2014Q4

REPORT INFORMATION
  Report Type: Spontaneous
  Country: US (occurrence: US)
  Receive Date: 20141108
  Receipt Date: 20141108
  Transmission Date: 20150529
  Serious: No
  Sender: FDA-Public Use
  Company Number: US-009507513-1410USA014940

PATIENT
  Sex: Female

DRUGS (1)
  1. PEGINTRON [Suspect]
     Active Substance: PEGINTERFERON ALFA-2B
     Dosage: UNK

REACTIONS (2)
  - Product quality issue [Unknown]
  - No adverse event [Unknown]
